FAERS Safety Report 22851490 (Version 3)
Quarter: 2024Q1

REPORT INFORMATION
  Report Type: Report from Study
  Country: US (occurrence: US)
  Receive Date: 20230822
  Receipt Date: 20240127
  Transmission Date: 20240410
  Serious: Yes (Other)
  Sender: FDA-Public Use
  Company Number: US-ABBVIE-5181843

PATIENT
  Sex: Female
  Weight: 61 kg

DRUGS (9)
  1. HUMIRA [Suspect]
     Active Substance: ADALIMUMAB
     Indication: Rheumatoid arthritis
     Dosage: LAST ADMIN DATE: 2023?- FORM STRENGTH: 40 MG
     Route: 058
     Dates: start: 20230622
  2. HUMIRA [Suspect]
     Active Substance: ADALIMUMAB
     Dosage: CITRATE FREE?FORM STRENGTH: 40 MG
     Route: 058
     Dates: start: 20220415
  3. HUMIRA [Suspect]
     Active Substance: ADALIMUMAB
     Dosage: - FORM STRENGTH: 40 MG CITRATE FREE?LAST-2023
     Route: 058
     Dates: start: 20230721
  4. HUMIRA [Suspect]
     Active Substance: ADALIMUMAB
     Dosage: LAST ADMIN DATE: JUL 2023?- FORM STRENGTH: 40 MG
     Route: 058
     Dates: start: 20230707
  5. HUMIRA [Suspect]
     Active Substance: ADALIMUMAB
     Dosage: LAST ADMIN DATE: 2023?- FORM STRENGTH: 40 MG
     Route: 058
     Dates: start: 20230526
  6. HUMIRA [Suspect]
     Active Substance: ADALIMUMAB
     Dosage: LAST ADMIN DATE: JUN 2023?- FORM STRENGTH: 40 MG
     Route: 058
     Dates: start: 20230609
  7. HUMIRA [Suspect]
     Active Substance: ADALIMUMAB
     Dosage: FORM STRENGTH 40 MILLIGRAM
     Route: 058
     Dates: start: 20220414, end: 20230108
  8. METHOTREXATE [Suspect]
     Active Substance: METHOTREXATE
     Indication: Product used for unknown indication
     Route: 065
     Dates: start: 202005
  9. MUCINEX [Concomitant]
     Active Substance: GUAIFENESIN
     Indication: Product used for unknown indication

REACTIONS (11)
  - Pulmonary mass [Unknown]
  - Bronchiectasis [Recovering/Resolving]
  - Fungal infection [Unknown]
  - Pneumonia [Unknown]
  - Mycobacterium avium complex infection [Unknown]
  - Pneumonia fungal [Unknown]
  - Lung disorder [Not Recovered/Not Resolved]
  - Chest discomfort [Unknown]
  - Asthma [Unknown]
  - Immunosuppression [Unknown]
  - Pneumonia bacterial [Not Recovered/Not Resolved]

NARRATIVE: CASE EVENT DATE: 20230101
